FAERS Safety Report 5604792-5 (Version None)
Quarter: 2008Q1

REPORT INFORMATION
  Report Type: 
  Country: None (occurrence: None)
  Receive Date: 20080128
  Receipt Date: 20080116
  Transmission Date: 20080703
  Serious: Yes (Other)
  Sender: FDA-Public Use
  Company Number: NZ-ROCHE-541830

PATIENT
  Sex: Female

DRUGS (2)
  1. RIBAVIRIN [Suspect]
     Indication: HEPATITIS C
     Dosage: DOSE REPORTED AS 6 DAILY
     Route: 065
  2. UNSPECIFIED MEDICATION [Concomitant]
     Dosage: DOSE REPORTED AS 3 INJECTIONS PER WEEK

REACTIONS (1)
  - TOOTH FRACTURE [None]
